FAERS Safety Report 9845833 (Version 1)
Quarter: 2013Q4

REPORT INFORMATION
  Report Type: Spontaneous
  Country: US (occurrence: None)
  Receive Date: 20131219
  Receipt Date: 20131219
  Transmission Date: 20140711
  Serious: Yes (Hospitalization)
  Sender: FDA-Public Use
  Company Number: 163-20785-13083355

PATIENT
  Sex: Male

DRUGS (1)
  1. THALOMID (THALIDOMIDE) (200 MILLIGRAM, CAPSULES) [Suspect]
     Indication: PLASMA CELL MYELOMA
     Dosage: PERMANENTLY DISCONTINUED
     Route: 048
     Dates: start: 200912

REACTIONS (4)
  - Asthenia [None]
  - Pyrexia [None]
  - Nausea [None]
  - Vomiting [None]
